FAERS Safety Report 23950829 (Version 1)
Quarter: 2024Q2

REPORT INFORMATION
  Report Type: Spontaneous
  Country: EG (occurrence: EG)
  Receive Date: 20240607
  Receipt Date: 20240607
  Transmission Date: 20240716
  Serious: Yes (Other)
  Sender: FDA-Public Use
  Company Number: EG-NOVOPROD-1230506

PATIENT
  Age: 647 Month
  Sex: Male
  Weight: 65 kg

DRUGS (4)
  1. LANTUS [Concomitant]
     Active Substance: INSULIN GLARGINE
     Indication: Diabetes mellitus
     Dosage: 20 IU, QD
     Route: 058
  2. TEROS [TADALAFIL] [Concomitant]
     Indication: Blood cholesterol abnormal
     Dosage: 1 TAB /DAY
     Route: 048
  3. NOVORAPID [Suspect]
     Active Substance: INSULIN ASPART
     Indication: Diabetes mellitus
     Dosage: 30 IU, QD
     Route: 058
  4. CIDOPHAGE [Concomitant]
     Indication: Blood cholesterol abnormal
     Dosage: 1 TAB /DAY
     Route: 048

REACTIONS (7)
  - Accident [Recovered/Resolved]
  - Dizziness [Recovered/Resolved]
  - Fall [Recovered/Resolved]
  - Disturbance in attention [Unknown]
  - Memory impairment [Unknown]
  - Lethargy [Unknown]
  - Blood glucose increased [Unknown]
